FAERS Safety Report 22256830 (Version 2)
Quarter: 2024Q2

REPORT INFORMATION
  Report Type: Spontaneous
  Country: US (occurrence: US)
  Receive Date: 20230426
  Receipt Date: 20240625
  Transmission Date: 20240716
  Serious: No
  Sender: FDA-Public Use
  Company Number: US-SA-SAC20230425001513

PATIENT
  Age: 21 Year
  Sex: Female

DRUGS (1)
  1. DUPIXENT [Suspect]
     Active Substance: DUPILUMAB
     Indication: Nasal polyps
     Dosage: 300 MG, OTHER
     Route: 058

REACTIONS (6)
  - Injection site mass [Unknown]
  - Injection site exfoliation [Unknown]
  - Feeling abnormal [Unknown]
  - Illness [Unknown]
  - Injection site bruising [Unknown]
  - Injection site erythema [Unknown]
